FAERS Safety Report 7941506-8 (Version None)
Quarter: 2011Q4

REPORT INFORMATION
  Report Type: 
  Country: None (occurrence: None)
  Receive Date: 20111122
  Receipt Date: 20111122
  Transmission Date: 20120403
  Serious: Yes (Hospitalization)
  Sender: FDA-Public Use
  Company Number: None

PATIENT
  Sex: Female
  Weight: 69.3 kg

DRUGS (3)
  1. OXYCODONE HCL [Concomitant]
  2. ERBITUX [Suspect]
     Dosage: 475 MG
  3. FENTANYL-100 [Concomitant]

REACTIONS (4)
  - SPINAL COLUMN STENOSIS [None]
  - APHASIA [None]
  - HEMIPARESIS [None]
  - DEPRESSED LEVEL OF CONSCIOUSNESS [None]
